FAERS Safety Report 11008967 (Version 2)
Quarter: 2015Q2

REPORT INFORMATION
  Report Type: Spontaneous
  Country: US (occurrence: US)
  Receive Date: 20150410
  Receipt Date: 20150520
  Transmission Date: 20150821
  Serious: No
  Sender: FDA-Public Use
  Company Number: US-PFIZER INC-2015121832

PATIENT
  Age: 4 Year
  Sex: Male
  Weight: 16.78 kg

DRUGS (2)
  1. QUILLIVANT XR [Suspect]
     Active Substance: METHYLPHENIDATE HYDROCHLORIDE
     Indication: ATTENTION DEFICIT/HYPERACTIVITY DISORDER
     Dosage: (6 MG WITH A 4 ML) 1X/DAY
     Dates: start: 20150404
  2. QUILLIVANT XR [Suspect]
     Active Substance: METHYLPHENIDATE HYDROCHLORIDE
     Indication: AFFECTIVE DISORDER

REACTIONS (3)
  - Decreased appetite [Unknown]
  - Product use issue [Unknown]
  - Insomnia [Unknown]

NARRATIVE: CASE EVENT DATE: 201504
